FAERS Safety Report 5301296-4 (Version None)
Quarter: 2007Q2

REPORT INFORMATION
  Report Type: 
  Country: None (occurrence: None)
  Receive Date: 20070418
  Receipt Date: 20070409
  Transmission Date: 20071010
  Serious: Yes (Other)
  Sender: FDA-Public Use
  Company Number: US-PFIZER INC-2007028997

PATIENT
  Sex: Female
  Weight: 53.1 kg

DRUGS (3)
  1. CHANTIX [Suspect]
  2. ZOLOFT [Concomitant]
  3. NEXIUM [Concomitant]

REACTIONS (3)
  - ERYTHEMA OF EYELID [None]
  - EYELID OEDEMA [None]
  - URTICARIA [None]
